FAERS Safety Report 24802812 (Version 1)
Quarter: 2025Q1

REPORT INFORMATION
  Report Type: Spontaneous
  Country: US (occurrence: US)
  Receive Date: 20250103
  Receipt Date: 20250103
  Transmission Date: 20250409
  Serious: Yes (Other)
  Sender: SANOFI AVENTIS
  Company Number: US-SANOFI-02357768

PATIENT
  Age: 50 Year
  Sex: Male

DRUGS (1)
  1. TOUJEO [Suspect]
     Active Substance: INSULIN GLARGINE
     Indication: Type 1 diabetes mellitus
     Dosage: 10U QAM  8U QPM , BID  (DRUG TREATMENT DURATION:ABOUT 10 YEARS)
     Route: 058
     Dates: start: 2014

REACTIONS (3)
  - Blindness [Unknown]
  - Parkinson^s disease [Unknown]
  - Off label use [Unknown]
